FAERS Safety Report 9353289 (Version 7)
Quarter: 2014Q2

REPORT INFORMATION
  Report Type: Report from Study
  Country: BR (occurrence: BR)
  Receive Date: 20130618
  Receipt Date: 20140515
  Transmission Date: 20141212
  Serious: Yes (Death, Hospitalization, Other)
  Sender: FDA-Public Use
  Company Number: BR-ROCHE-1237787

PATIENT
  Age: 78 Year
  Sex: Female
  Weight: 67 kg

DRUGS (4)
  1. ACTEMRA [Suspect]
     Indication: RHEUMATOID ARTHRITIS
     Dosage: DATE OF MOST RECENT DOSE OF TOCILIZUMAB: /SEP/2013
     Route: 042
     Dates: start: 20100122, end: 20140227
  2. TRAMAL [Concomitant]
     Indication: PAIN
  3. ANCORON [Concomitant]
  4. NORIPURUM [Concomitant]

REACTIONS (11)
  - Infection [Fatal]
  - Anal haemorrhage [Recovered/Resolved]
  - Diverticulitis [Unknown]
  - Fall [Unknown]
  - Femur fracture [Unknown]
  - Tachycardia [Recovered/Resolved]
  - Ear infection [Recovered/Resolved]
  - Speech disorder [Not Recovered/Not Resolved]
  - Pain [Recovered/Resolved]
  - Dyskinesia [Recovered/Resolved]
  - Anaemia [Recovered/Resolved]
